FAERS Safety Report 21041007 (Version 3)
Quarter: 2023Q1

REPORT INFORMATION
  Report Type: Spontaneous
  Country: FR (occurrence: FR)
  Receive Date: 20220704
  Receipt Date: 20230213
  Transmission Date: 20230418
  Serious: Yes (Hospitalization)
  Sender: FDA-Public Use
  Company Number: None

PATIENT
  Age: 56 Year
  Sex: Male
  Weight: 75.6 kg

DRUGS (18)
  1. AMLODIPINE BESYLATE [Suspect]
     Active Substance: AMLODIPINE BESYLATE
     Indication: Hypertension
     Dosage: 5 MILLIGRAM, QD (5 MG, 1X/DAY)
     Route: 048
     Dates: start: 20220125, end: 202205
  2. LEUCOVORIN CALCIUM [Suspect]
     Active Substance: LEUCOVORIN CALCIUM
     Indication: Haematotoxicity
     Dosage: 525 MILLIGRAM, QD (525 MG, 1X/DAY)
     Route: 048
     Dates: start: 20220125
  3. ACETAMINOPHEN [Suspect]
     Active Substance: ACETAMINOPHEN
     Indication: Product used for unknown indication
     Dosage: UNK (AS NEEDED)
     Route: 048
     Dates: start: 2021
  4. FUROSEMIDE [Suspect]
     Active Substance: FUROSEMIDE
     Indication: Product used for unknown indication
     Dosage: 40 MILLIGRAM, QD (40 MG, 1X/DAY)
     Route: 048
     Dates: start: 20211220
  5. PREDNISONE [Suspect]
     Active Substance: PREDNISONE
     Indication: Prophylaxis against transplant rejection
     Dosage: 30 MILLIGRAM, QD (30 MG, 1X/DAY)
     Route: 048
     Dates: start: 20211229
  6. CELLCEPT [Suspect]
     Active Substance: MYCOPHENOLATE MOFETIL
     Indication: Prophylaxis against transplant rejection
     Dosage: 500 MILLIGRAM, BID (500 MG, 2X/DAY (EVERY 12 H))
     Route: 048
     Dates: start: 20220125, end: 20220503
  7. ESOMEPRAZOLE [Suspect]
     Active Substance: ESOMEPRAZOLE
     Indication: Prophylaxis against gastrointestinal ulcer
     Dosage: 40 MILLIGRAM, QD (40 MG, 1X/DAY)
     Route: 048
     Dates: start: 20220125
  8. FILGRASTIM [Suspect]
     Active Substance: FILGRASTIM
     Indication: Neutropenia
     Dosage: UNK (30 10 6.IU, CYCLIC (5 TIMES A WEEK))
     Route: 042
     Dates: start: 20211220
  9. BACTRIM [Suspect]
     Active Substance: SULFAMETHOXAZOLE\TRIMETHOPRIM
     Indication: Opportunistic infection prophylaxis
     Dosage: UNK (400/80 MG, 2X/WEEK)
     Route: 048
     Dates: start: 20211221
  10. ARANESP [Suspect]
     Active Substance: DARBEPOETIN ALFA
     Indication: Anaemia
     Dosage: 300 MICROGRAM, QW (300 UG, WEEKLY)
     Route: 058
     Dates: start: 20220125
  11. CALCIUM CARBONATE\CHOLECALCIFEROL [Suspect]
     Active Substance: CALCIUM CARBONATE\CHOLECALCIFEROL
     Indication: Vitamin supplementation
     Dosage: 2 DOSAGE FORM, QD (2 DF, 1X/DAY)
     Route: 048
     Dates: start: 20220125
  12. PREVYMIS [Suspect]
     Active Substance: LETERMOVIR
     Indication: Antiviral prophylaxis
     Dosage: 480 MILLIGRAM, QD (480 MG, 1X/DAY)
     Route: 048
     Dates: start: 20211220
  13. URSODIOL [Suspect]
     Active Substance: URSODIOL
     Indication: Product used for unknown indication
     Dosage: 250 MILLIGRAM, BID (250 MG, 2X/DAY (EVERY 12 H))
     Route: 048
     Dates: start: 20211220
  14. VALACYCLOVIR HYDROCHLORIDE [Suspect]
     Active Substance: VALACYCLOVIR HYDROCHLORIDE
     Indication: Antiviral prophylaxis
     Dosage: 500 MILLIGRAM, BID (500 MG, 2X/DAY (EVERY 12 H))
     Route: 048
     Dates: start: 2021
  15. NOXAFIL [Suspect]
     Active Substance: POSACONAZOLE
     Indication: Antifungal prophylaxis
     Dosage: 300 MILLIGRAM, QD (300 MG, 1X/DAY)
     Route: 048
     Dates: start: 2021
  16. ELTROMBOPAG OLAMINE [Suspect]
     Active Substance: ELTROMBOPAG OLAMINE
     Indication: Thrombocytopenia
     Dosage: 150 MILLIGRAM, QD (150 MG, 1X/DAY)
     Route: 048
     Dates: start: 20220125
  17. ELTROMBOPAG OLAMINE [Suspect]
     Active Substance: ELTROMBOPAG OLAMINE
     Dosage: 225 MILLIGRAM, QD (225 MG, 1X/DAY)
     Route: 048
     Dates: start: 20220510
  18. FUNGIZONE [Suspect]
     Active Substance: AMPHOTERICIN B
     Indication: Product used for unknown indication
     Dosage: UNK (MOUTHWASHES, 3X/DAY)
     Route: 048
     Dates: start: 20211220

REACTIONS (2)
  - Renal failure [Not Recovered/Not Resolved]
  - Condition aggravated [Not Recovered/Not Resolved]
